FAERS Safety Report 14871316 (Version 2)
Quarter: 2018Q2

REPORT INFORMATION
  Report Type: Report from Study
  Country: US (occurrence: US)
  Receive Date: 20180509
  Receipt Date: 20180515
  Transmission Date: 20180711
  Serious: Yes (Congenital Anomaly)
  Sender: FDA-Public Use
  Company Number: US-GILEAD-2018-0337254

PATIENT
  Sex: Female
  Weight: 1.78 kg

DRUGS (3)
  1. RETROVIR [Suspect]
     Active Substance: ZIDOVUDINE
     Indication: HIV INFECTION
     Dosage: 1 MG/KG, Q1HR
     Route: 064
     Dates: start: 20180404, end: 20180404
  2. EMTRICITABINE/RILPIVIRINE/TENOFOVIR ALAFENAMIDE [Suspect]
     Active Substance: EMTRICITABINE\RILPIVIRINE HYDROCHLORIDE\TENOFOVIR ALAFENAMIDE FUMARATE
     Indication: HIV INFECTION
     Dosage: 1 DF, QD
     Route: 064
     Dates: start: 20170807, end: 20180404
  3. RETROVIR [Suspect]
     Active Substance: ZIDOVUDINE
     Dosage: 161.4 MG, QD
     Route: 064
     Dates: start: 20180404, end: 20180404

REACTIONS (3)
  - Premature baby [Recovered/Resolved]
  - Foetal exposure during pregnancy [Recovered/Resolved]
  - Tooth development disorder [Recovered/Resolved]

NARRATIVE: CASE EVENT DATE: 20170807
